FAERS Safety Report 9191604 (Version 1)
Quarter: 2013Q1

REPORT INFORMATION
  Report Type: Report from Study
  Country: CN (occurrence: CN)
  Receive Date: 20130326
  Receipt Date: 20130326
  Transmission Date: 20140127
  Serious: Yes (Death)
  Sender: FDA-Public Use
  Company Number: CN-BAXTER-2013BAX010319

PATIENT
  Sex: 0

DRUGS (10)
  1. ENDOXAN 1G [Suspect]
     Indication: ACUTE MYELOID LEUKAEMIA
     Dosage: TAKEN ON DAYS -3 AND -2
     Route: 065
  2. BUSULFAN [Suspect]
     Indication: ACUTE MYELOID LEUKAEMIA
     Dosage: TAKEN ON DAYS -7 TO -4
     Route: 065
  3. ACYCLOVIR [Concomitant]
     Indication: PROPHYLAXIS
     Route: 065
  4. SULFAMETHOXAZOLE [Concomitant]
     Indication: PRODUCT USED FOR UNKNOWN INDICATION
     Route: 048
  5. NORFLOXACIN [Concomitant]
     Indication: PRODUCT USED FOR UNKNOWN INDICATION
     Route: 065
  6. ALPROSTADIL [Concomitant]
     Indication: PROPHYLAXIS
     Route: 065
  7. PHENYTOIN [Concomitant]
     Indication: PROPHYLAXIS
     Route: 065
  8. FRAXIPARINE [Concomitant]
     Indication: PRODUCT USED FOR UNKNOWN INDICATION
     Route: 042
  9. GRANULOCYTE COLONY STIMULATING FACTOR [Concomitant]
     Indication: PRODUCT USED FOR UNKNOWN INDICATION
     Route: 065
  10. GANCICLOVIR [Concomitant]
     Indication: PROPHYLAXIS
     Route: 065

REACTIONS (1)
  - Cystitis haemorrhagic [Fatal]
